FAERS Safety Report 5312003-3 (Version None)
Quarter: 2007Q2

REPORT INFORMATION
  Report Type: 
  Country: None (occurrence: None)
  Receive Date: 20070430
  Receipt Date: 20060505
  Transmission Date: 20071010
  Serious: No
  Sender: FDA-Public Use
  Company Number: 2006UW08849

PATIENT
  Sex: Male

DRUGS (4)
  1. NEXIUM [Suspect]
     Route: 048
     Dates: start: 20060501
  2. ASMANEX TWISTHALER [Concomitant]
  3. ALBUTEROL [Concomitant]
     Route: 045
  4. UNSPECIFIED STEROID [Concomitant]

REACTIONS (1)
  - FEELING JITTERY [None]
